FAERS Safety Report 16507293 (Version 10)
Quarter: 2020Q1

REPORT INFORMATION
  Report Type: Report from Study
  Country: US (occurrence: US)
  Receive Date: 20190701
  Receipt Date: 20200210
  Transmission Date: 20200409
  Serious: Yes (Death, Hospitalization)
  Sender: FDA-Public Use
  Company Number: US-ACTELION-A-NJ2019-191249

PATIENT
  Age: 74 Year
  Sex: Female
  Weight: 78.01 kg

DRUGS (5)
  1. OPSUMIT [Suspect]
     Active Substance: MACITENTAN
     Indication: PULMONARY ARTERIAL HYPERTENSION
     Dosage: 10 MG, QD
     Route: 048
     Dates: start: 201902
  2. NORVASC [Concomitant]
     Active Substance: AMLODIPINE BESYLATE
  3. OFEV [Suspect]
     Active Substance: NINTEDANIB
     Indication: PRODUCT USED FOR UNKNOWN INDICATION
     Dosage: 150 MG, BID
     Route: 065
  4. ADEMPAS [Concomitant]
     Active Substance: RIOCIGUAT
  5. AMLODIPINE [Concomitant]
     Active Substance: AMLODIPINE BESYLATE

REACTIONS (19)
  - Fluid overload [Recovering/Resolving]
  - Cardiac failure congestive [Unknown]
  - Pneumonia [Unknown]
  - Memory impairment [Unknown]
  - Death [Fatal]
  - Fluid retention [Unknown]
  - Myocardial oedema [Recovering/Resolving]
  - Headache [Unknown]
  - Dyspnoea [Recovering/Resolving]
  - Vision blurred [Recovered/Resolved]
  - Oedematous kidney [Recovering/Resolving]
  - Peripheral swelling [Not Recovered/Not Resolved]
  - Gait disturbance [Not Recovered/Not Resolved]
  - Product dose omission [Unknown]
  - Pulmonary oedema [Recovering/Resolving]
  - Abdominal discomfort [Unknown]
  - Decreased appetite [Unknown]
  - Gastric ulcer [Recovered/Resolved]
  - Cough [Unknown]

NARRATIVE: CASE EVENT DATE: 20190729
